FAERS Safety Report 4589113-1 (Version None)
Quarter: 2005Q1

REPORT INFORMATION
  Report Type: 
  Country: None (occurrence: None)
  Receive Date: 20050125
  Receipt Date: 20040924
  Transmission Date: 20050727
  Serious: No
  Sender: FDA-Public Use
  Company Number: USA040979187

PATIENT
  Age: 71 Year
  Sex: Female
  Weight: 60 kg

DRUGS (2)
  1. FORTEO [Suspect]
     Indication: OSTEOPOROSIS
     Dosage: 20 UG/1 DAY
     Dates: start: 20040910
  2. ZITHROMAX [Concomitant]

REACTIONS (5)
  - ASTHENIA [None]
  - CONSTIPATION [None]
  - EAR PAIN [None]
  - PAIN IN EXTREMITY [None]
  - PYREXIA [None]
